FAERS Safety Report 8293986 (Version 4)
Quarter: 2016Q4

REPORT INFORMATION
  Report Type: Report from Study
  Country: CA (occurrence: CA)
  Receive Date: 20111216
  Receipt Date: 20161130
  Transmission Date: 20170207
  Serious: Yes (Other)
  Sender: FDA-Public Use
  Company Number: CA-UCBSA-047053

PATIENT
  Sex: Female
  Weight: 71.7 kg

DRUGS (20)
  1. IRON [Concomitant]
     Active Substance: IRON
  2. FOLIC ACID. [Concomitant]
     Active Substance: FOLIC ACID
  3. LAMOTRYGINE [Concomitant]
     Indication: BIPOLAR DISORDER
     Dosage: 100 MG, 2X/DAY (BID)
     Route: 048
  4. AMOXICILLIN. [Concomitant]
     Active Substance: AMOXICILLIN
     Indication: LOWER RESPIRATORY TRACT INFECTION
  5. CERTOLIZUMAB PEGOL RA [Suspect]
     Active Substance: CERTOLIZUMAB PEGOL
     Indication: RHEUMATOID ARTHRITIS
     Dosage: 400 MG, MONTHLY (QM)
     Route: 058
     Dates: start: 20101201, end: 20110711
  6. CERTOLIZUMAB PEGOL RA [Suspect]
     Active Substance: CERTOLIZUMAB PEGOL
     Dosage: 200 MG, EV 2 WEEKS(QOW)
     Route: 058
     Dates: start: 20110715, end: 2011
  7. CYMBALTA [Concomitant]
     Active Substance: DULOXETINE HYDROCHLORIDE
     Indication: DEPRESSION
     Route: 048
  8. PENICILLIN V [Concomitant]
     Active Substance: PENICILLIN V
     Indication: LOWER RESPIRATORY TRACT INFECTION
  9. PREDNISONE. [Concomitant]
     Active Substance: PREDNISONE
     Indication: RHEUMATOID ARTHRITIS
     Route: 048
  10. VENTOLIN [Concomitant]
     Active Substance: ALBUTEROL SULFATE
     Indication: ASTHMA
     Dosage: 2 PUFFS PER DOSE BY INH
     Route: 055
  11. ADDERALL XR SR [Concomitant]
     Indication: ATTENTION DEFICIT/HYPERACTIVITY DISORDER
     Dosage: 20 MG, ONCE DAILY (QD)
     Route: 048
  12. FLAGYL [Concomitant]
     Active Substance: METRONIDAZOLE\METRONIDAZOLE HYDROCHLORIDE
     Indication: PNEUMONIA
  13. CELEBREX [Concomitant]
     Active Substance: CELECOXIB
     Indication: RHEUMATOID ARTHRITIS
     Dosage: 200 MG, 2X/DAY (BID)
     Route: 048
  14. CERTOLIZUMAB PEGOL RA [Suspect]
     Active Substance: CERTOLIZUMAB PEGOL
     Dosage: UNK
     Dates: start: 2012, end: 2012
  15. MEGACAL-CA WITH VIT D [Suspect]
     Active Substance: CALCIUM\CHOLECALCIFEROL
     Indication: GENERAL PHYSICAL HEALTH DETERIORATION
     Dosage: 650 MG, 2X/DAY (BID)
     Route: 048
     Dates: end: 20111005
  16. METHOTREXATE. [Concomitant]
     Active Substance: METHOTREXATE
     Indication: RHEUMATOID ARTHRITIS
     Dosage: 12.5 MG, WEEKLY (QW)
     Route: 058
  17. MORPHINE [Concomitant]
     Active Substance: MORPHINE
     Indication: PRODUCT USED FOR UNKNOWN INDICATION
  18. PREVACID [Concomitant]
     Active Substance: LANSOPRAZOLE
  19. STRATTERA [Concomitant]
     Active Substance: ATOMOXETINE HYDROCHLORIDE
     Indication: ATTENTION DEFICIT/HYPERACTIVITY DISORDER
     Dosage: 60 MG, ONCE DAILY (QD)
     Route: 048
  20. REXALL PRENATAL VIT [Concomitant]
     Indication: GENERAL PHYSICAL HEALTH DETERIORATION
     Dosage: 1 TABLET TWICE DAILY
     Route: 048

REACTIONS (12)
  - Bronchitis [Recovered/Resolved]
  - Osteoarthritis [Unknown]
  - Nasopharyngitis [Recovered/Resolved]
  - Ligament disorder [Unknown]
  - Pyrexia [Unknown]
  - Carpal tunnel syndrome [Recovering/Resolving]
  - Arthritis [Unknown]
  - Asthma [Recovered/Resolved]
  - Anxiety [Unknown]
  - Incision site haemorrhage [Recovered/Resolved]
  - Pneumonia [Recovering/Resolving]
  - Drug ineffective [Unknown]

NARRATIVE: CASE EVENT DATE: 2010
